FAERS Safety Report 6773948-0 (Version None)
Quarter: 2010Q2

REPORT INFORMATION
  Report Type: 
  Country: None (occurrence: None)
  Receive Date: 20100617
  Receipt Date: 20100616
  Transmission Date: 20101027
  Serious: Yes (Hospitalization)
  Sender: FDA-Public Use
  Company Number: PHHO2008US05401

PATIENT
  Sex: Female
  Weight: 72 kg

DRUGS (1)
  1. CERTICAN [Suspect]
     Indication: HEART TRANSPLANT
     Dosage: 0.25 MG, QD
     Route: 048
     Dates: start: 20061126, end: 20080315

REACTIONS (7)
  - ABDOMINAL HERNIA [None]
  - ABSCESS [None]
  - BACTERIAL INFECTION [None]
  - HERNIA REPAIR [None]
  - POSTOPERATIVE WOUND INFECTION [None]
  - THERAPEUTIC ASPIRATION [None]
  - WOUND DRAINAGE [None]
